FAERS Safety Report 5949995-5 (Version None)
Quarter: 2008Q4

REPORT INFORMATION
  Report Type: 
  Country: None (occurrence: None)
  Receive Date: 20081112
  Receipt Date: 20081031
  Transmission Date: 20090506
  Serious: Yes (Death)
  Sender: FDA-Public Use
  Company Number: JP-ABBOTT-08P-087-0486216-00

PATIENT
  Age: 71 Year
  Sex: Male

DRUGS (2)
  1. LEUPROLIDE ACETATE [Suspect]
     Indication: PROSTATE CANCER STAGE II
     Route: 058
     Dates: start: 20060731, end: 20071218
  2. LEUPROLIDE ACETATE [Suspect]
     Dates: start: 20060228, end: 20060703

REACTIONS (1)
  - MYOCARDIAL INFARCTION [None]
